FAERS Safety Report 7473838-4 (Version None)
Quarter: 2011Q2

REPORT INFORMATION
  Report Type: 
  Country: None (occurrence: None)
  Receive Date: 20110503
  Receipt Date: 20110420
  Transmission Date: 20111010
  Serious: Yes (Life-Threatening, Hospitalization, Other)
  Sender: FDA-Public Use
  Company Number: WAES 1103USA03358

PATIENT
  Age: 81 Year
  Sex: Male

DRUGS (14)
  1. PLACEBO [Suspect]
     Indication: ACUTE CORONARY SYNDROME
     Dosage: PO; PO
     Route: 048
     Dates: start: 20080630
  2. PLACEBO [Suspect]
     Indication: ACUTE CORONARY SYNDROME
     Dosage: PO; PO
     Route: 048
     Dates: start: 20080630
  3. CLOPIDOGREL [Concomitant]
  4. SPIRVIA [Concomitant]
  5. ALBUTEROL [Concomitant]
  6. QUININESO4 [Concomitant]
  7. BISOPROLOL FUMARATE [Concomitant]
  8. ISOSORBIDE DINITRATE [Concomitant]
  9. ZOCOR [Suspect]
     Indication: ACUTE CORONARY SYNDROME
     Dosage: 40 MG/DAILY, PO
     Route: 048
     Dates: start: 20080630
  10. NICORANDIL [Concomitant]
  11. SERETIDE [Concomitant]
  12. SIMVASTATIN [Concomitant]
  13. BENDROFLUMETHIAZIDE [Concomitant]
  14. OMEPRAZOLE [Concomitant]

REACTIONS (3)
  - METASTASES TO BONE [None]
  - WEIGHT DECREASED [None]
  - PLEURA CARCINOMA [None]
